FAERS Safety Report 20421774 (Version 4)
Quarter: 2022Q1

REPORT INFORMATION
  Report Type: Report from Study
  Country: BE (occurrence: BE)
  Receive Date: 20220203
  Receipt Date: 20220324
  Transmission Date: 20220423
  Serious: Yes (Other)
  Sender: FDA-Public Use
  Company Number: BE-ABBVIE-22K-013-4239573-00

PATIENT
  Sex: Male
  Weight: 95 kg

DRUGS (16)
  1. CARBIDOPA\LEVODOPA [Suspect]
     Active Substance: CARBIDOPA\LEVODOPA
     Indication: Parkinson^s disease
     Route: 050
     Dates: start: 20171127
  2. CARBIDOPA\LEVODOPA [Suspect]
     Active Substance: CARBIDOPA\LEVODOPA
     Dosage: MD 9.0 ML, CD 4.0 ML/HR DURING 16 HOURS, ED 3.5 ML
     Route: 050
     Dates: start: 20210809, end: 20211222
  3. CARBIDOPA\LEVODOPA [Suspect]
     Active Substance: CARBIDOPA\LEVODOPA
     Dosage: MD 9.0 ML, CD 4.0 ML/HR DURING 16 HOURS, ED 3.5 ML
     Route: 050
     Dates: start: 20211222, end: 20220120
  4. CARBIDOPA\LEVODOPA [Suspect]
     Active Substance: CARBIDOPA\LEVODOPA
     Dosage: MD 9.0 ML, CD 4.0 ML/HR DURING 16 HOURS, ED 3.5 ML
     Route: 050
     Dates: start: 20220120, end: 202201
  5. CARBIDOPA\LEVODOPA [Suspect]
     Active Substance: CARBIDOPA\LEVODOPA
     Route: 050
     Dates: start: 202201, end: 20220311
  6. CARBIDOPA\LEVODOPA [Suspect]
     Active Substance: CARBIDOPA\LEVODOPA
     Dosage: MD 9.0 ML, CD 4.0 ML/HR DURING 16 HOURS, ED 3.5 ML
     Route: 050
     Dates: start: 20220311, end: 20220318
  7. CARBIDOPA\LEVODOPA [Suspect]
     Active Substance: CARBIDOPA\LEVODOPA
     Dosage: MD 9.0 ML. CD 4.0 ML/HR DURING 16 HOURS, ED 3.5 ML
     Route: 050
     Dates: start: 20220318
  8. AZILECT [Concomitant]
     Active Substance: RASAGILINE MESYLATE
     Indication: Product used for unknown indication
     Dosage: FREQUENCY AT 8.00 HOUR
  9. PRAMIPEXOLE [Concomitant]
     Active Substance: PRAMIPEXOLE
     Indication: Product used for unknown indication
     Dosage: FREQUENCY AT 6.00 HOUR
  10. BENSERAZIDE\LEVODOPA [Concomitant]
     Active Substance: BENSERAZIDE\LEVODOPA
     Indication: Product used for unknown indication
     Dosage: FREQUENCY AT 6.00 HOUR?DISP
  11. BENSERAZIDE\LEVODOPA [Concomitant]
     Active Substance: BENSERAZIDE\LEVODOPA
     Indication: Product used for unknown indication
     Dosage: FREQUENCY AT 21.00 HOUR
  12. STALEVO [Concomitant]
     Active Substance: CARBIDOPA\ENTACAPONE\LEVODOPA
     Indication: Product used for unknown indication
     Dosage: FREQUENCY AT 6.00 HOUR
  13. STALEVO [Concomitant]
     Active Substance: CARBIDOPA\ENTACAPONE\LEVODOPA
     Dosage: FREQUENCY: 9.00;12.00;15.00;18.00 HOURS
  14. METFORMIN HYDROCHLORIDE [Concomitant]
     Active Substance: METFORMIN HYDROCHLORIDE
     Indication: Product used for unknown indication
     Dosage: FREQUENCY AT 8.00 HOUR
  15. OMEPRAZOLE [Concomitant]
     Active Substance: OMEPRAZOLE
     Indication: Product used for unknown indication
     Dosage: FREQUENCY AT 8.00 HOUR
  16. APOMORPHINE [Concomitant]
     Active Substance: APOMORPHINE
     Indication: Parkinson^s disease
     Route: 058

REACTIONS (5)
  - Embedded device [Recovered/Resolved]
  - Device issue [Recovered/Resolved]
  - Off label use [Recovered/Resolved]
  - Device dislocation [Recovered/Resolved]
  - Stoma site erythema [Unknown]
